FAERS Safety Report 4651884-3 (Version None)
Quarter: 2005Q2

REPORT INFORMATION
  Report Type: 
  Country: None (occurrence: None)
  Receive Date: 20050504
  Receipt Date: 20050422
  Transmission Date: 20051028
  Serious: Yes (Other)
  Sender: FDA-Public Use
  Company Number: 2005JP000872

PATIENT
  Age: 17 Year
  Sex: Male
  Weight: 60 kg

DRUGS (4)
  1. CEFAMEZIN [Suspect]
     Indication: ILL-DEFINED DISORDER
     Dosage: 1G PER DAY
     Route: 042
  2. BUPIVACAINE HCL [Suspect]
     Indication: ILL-DEFINED DISORDER
     Dosage: 2.7ML PER DAY
     Route: 037
  3. POVIDONE IODINE [Suspect]
     Route: 061
  4. RINGER'S [Concomitant]

REACTIONS (8)
  - ANAPHYLACTOID REACTION [None]
  - BLOOD PRESSURE SYSTOLIC DECREASED [None]
  - CHEST X-RAY ABNORMAL [None]
  - COUGH [None]
  - DYSPNOEA [None]
  - ERYTHEMA [None]
  - HYPOXIA [None]
  - OXYGEN SATURATION DECREASED [None]
